FAERS Safety Report 7983999-6 (Version None)
Quarter: 2011Q4

REPORT INFORMATION
  Report Type: 
  Country: None (occurrence: None)
  Receive Date: 20111214
  Receipt Date: 20111205
  Transmission Date: 20120403
  Serious: Yes (Hospitalization, Other)
  Sender: FDA-Public Use
  Company Number: 2010MA004931

PATIENT
  Age: 53 Year
  Sex: Female
  Weight: 65.7716 kg

DRUGS (104)
  1. METOCLOPRAMIDE [Suspect]
     Indication: NAUSEA
     Dosage: 20 MG;QID;PO
     Route: 048
     Dates: start: 19910413, end: 20091206
  2. METOCLOPRAMIDE [Suspect]
     Indication: DIABETIC GASTROPARESIS
     Dosage: 20 MG;QID;PO
     Route: 048
     Dates: start: 19910413, end: 20091206
  3. METOCLOPRAMIDE [Suspect]
     Indication: GASTROOESOPHAGEAL REFLUX DISEASE
     Dosage: 20 MG;QID;PO
     Route: 048
     Dates: start: 19910413, end: 20091206
  4. ACTICIN [Concomitant]
  5. AZMACORT [Concomitant]
  6. CHLORTHALIDONE [Concomitant]
  7. CITALOPRAM [Concomitant]
  8. CRESTOR [Concomitant]
  9. DUONEB [Concomitant]
  10. OXYCODONE HCL AND ACETAMINOPHEN [Concomitant]
  11. ENULOSE [Concomitant]
  12. FERROUS SULFATE TAB [Concomitant]
  13. FUROSEMIDE [Concomitant]
  14. IPRATROPIUM BROMIDE [Concomitant]
  15. LYRICA [Concomitant]
  16. OXYCONTIN [Concomitant]
  17. RANITIDINE [Concomitant]
  18. AMBIEN [Concomitant]
  19. COLCHICINE [Concomitant]
  20. DOCUSATE SODIUM [Concomitant]
  21. FLUOXETINE [Concomitant]
  22. HYDROCHLOROTHIAZIDE [Concomitant]
  23. HYDROXYZINE [Concomitant]
  24. OMNICEF [Concomitant]
  25. PHENYLPROPANOLAMINE/GUAIFENESIN [Concomitant]
  26. PROAIR HFA [Concomitant]
  27. QVAR 40 [Concomitant]
  28. BACTRIM [Concomitant]
  29. TRAZODONE HCL [Concomitant]
  30. ALPRAZOLAM [Concomitant]
  31. AMITRIPTYLINE HCL [Concomitant]
  32. AMLACTIN [Concomitant]
  33. AUGMENTIN [Concomitant]
  34. BIAXIN [Concomitant]
  35. CHERATUSSIN [Concomitant]
  36. CLINDAMYCIN [Concomitant]
  37. COMBIVENT [Concomitant]
  38. DICYCLOMINE [Concomitant]
  39. DOXYCYCLINE [Concomitant]
  40. FLUTICASONE FUROATE [Concomitant]
  41. LEXAPRO [Concomitant]
  42. METHYLPREDNISOLONE [Concomitant]
  43. OOMEPRAZOLE [Concomitant]
  44. PROMETHAZINE [Concomitant]
  45. SINGULAIR [Concomitant]
  46. SILVER NITRATE [Concomitant]
  47. CEFUROXIME [Concomitant]
  48. CEPHALEXIN [Concomitant]
  49. FLUDROCORTISONE ACETATE [Concomitant]
  50. HYDROXYCHLOROQUINE SULFATE [Concomitant]
  51. VINCRISTINE SULFATE [Concomitant]
  52. PREDNISONE [Concomitant]
  53. PREMARIN [Concomitant]
  54. PROMETHAZINE W/ CODEINE [Concomitant]
  55. SPIRONOLACTONE [Concomitant]
  56. DYAZIDE [Concomitant]
  57. Z-PANAFIL [Concomitant]
  58. AVELOX [Concomitant]
  59. CELEBREX [Concomitant]
  60. DOXEPIN [Concomitant]
  61. FLUCONAZOLE [Concomitant]
  62. LACTULOSE [Concomitant]
  63. LORAZEPAM [Concomitant]
  64. METOLAZINE [Concomitant]
  65. PANTOPRAZOLE [Concomitant]
  66. POTASSIUM CHLORIDE [Concomitant]
  67. CLARITIN [Concomitant]
  68. CLONIDINE [Concomitant]
  69. CYMBALTA [Concomitant]
  70. ERYTHROMYCIN [Concomitant]
  71. FERROUS GLUCONATE [Concomitant]
  72. GABAPENTIN [Concomitant]
  73. INSULIN [Concomitant]
  74. LEVAQUIN [Concomitant]
  75. LIPITOR [Concomitant]
  76. LISINOPRIL [Concomitant]
  77. METRONIDAZOLE [Concomitant]
  78. NEOMYCIN [Concomitant]
  79. PREVACID [Concomitant]
  80. VITAMIN D [Concomitant]
  81. TAMIFLU [Concomitant]
  82. ADVAIR DISKUS 100/50 [Concomitant]
  83. AMOXICILLIN [Concomitant]
  84. AZATHIOPRINE [Concomitant]
  85. CEFADROXIL [Concomitant]
  86. CLONAZEPAM [Concomitant]
  87. DICLOFENAC SODIUM [Concomitant]
  88. DIFLUCAN [Concomitant]
  89. DIPHENOXYLATE HCL + ATROPINE SULFATE [Concomitant]
  90. IMIPRAMINE [Concomitant]
  91. MAG-OXIDE [Concomitant]
  92. METOPROLOL TARTRATE [Concomitant]
  93. POLYETHYLENE GLYCOL [Concomitant]
  94. DYAZIDE [Concomitant]
  95. ALBUTEROL [Concomitant]
  96. ASACOL [Concomitant]
  97. HYDROCODONE BITARTRATE AND ACETAMINOPHEN [Concomitant]
  98. METHYLDOPA [Concomitant]
  99. HYDROMORPHONE HCL [Concomitant]
  100. HYOSCYAMINE [Concomitant]
  101. LEVOTHYROXINE SODIUM [Concomitant]
  102. MUCINEX [Concomitant]
  103. TEMAZEPAM [Concomitant]
  104. WELLBUTRIN [Concomitant]

REACTIONS (72)
  - INJURY [None]
  - DIABETIC NEUROPATHY [None]
  - CELLULITIS [None]
  - NAUSEA [None]
  - INSOMNIA [None]
  - BACK PAIN [None]
  - HYPOTENSION [None]
  - PALLOR [None]
  - ANAEMIA MACROCYTIC [None]
  - BLOOD GLUCOSE INCREASED [None]
  - DIVERTICULUM [None]
  - GLYCOSYLATED HAEMOGLOBIN INCREASED [None]
  - COLITIS ISCHAEMIC [None]
  - TARDIVE DYSKINESIA [None]
  - EMOTIONAL DISORDER [None]
  - ANAEMIA [None]
  - CONNECTIVE TISSUE DISORDER [None]
  - COLOSTOMY [None]
  - LOCALISED INFECTION [None]
  - UNEVALUABLE EVENT [None]
  - GAIT DISTURBANCE [None]
  - HEART RATE INCREASED [None]
  - NEPHROLITHIASIS [None]
  - DOUBLE STRANDED DNA ANTIBODY POSITIVE [None]
  - CATARACT [None]
  - RECTAL FISSURE [None]
  - C-REACTIVE PROTEIN INCREASED [None]
  - BLOOD THYROID STIMULATING HORMONE DECREASED [None]
  - BLOOD IMMUNOGLOBULIN G INCREASED [None]
  - ABDOMINAL TENDERNESS [None]
  - DYSPNOEA [None]
  - FIBROMYALGIA [None]
  - PROCEDURAL SITE REACTION [None]
  - BILE DUCT STONE [None]
  - HYPERKALAEMIA [None]
  - BLOOD SODIUM DECREASED [None]
  - CONSTIPATION [None]
  - DIABETES MELLITUS [None]
  - RECTAL PROLAPSE [None]
  - ANXIETY [None]
  - CHEST DISCOMFORT [None]
  - ARTHRALGIA [None]
  - PAIN [None]
  - INFLUENZA [None]
  - PNEUMONIA [None]
  - HYPOGLYCAEMIA [None]
  - NEGLECT OF PERSONAL APPEARANCE [None]
  - ANTINUCLEAR ANTIBODY POSITIVE [None]
  - BODY TEMPERATURE INCREASED [None]
  - CARDIOLIPIN ANTIBODY POSITIVE [None]
  - INTERSTITIAL LUNG DISEASE [None]
  - MONOCLONAL GAMMOPATHY [None]
  - BLOOD THYROID STIMULATING HORMONE INCREASED [None]
  - HEPATIC ENZYME INCREASED [None]
  - LIGHT CHAIN ANALYSIS INCREASED [None]
  - EXTRAPYRAMIDAL DISORDER [None]
  - ECONOMIC PROBLEM [None]
  - DIARRHOEA [None]
  - STRESS [None]
  - BRONCHITIS [None]
  - TREATMENT NONCOMPLIANCE [None]
  - MOOD ALTERED [None]
  - BLOOD GLUCOSE DECREASED [None]
  - ANAL SPHINCTER ATONY [None]
  - BLOOD CHLORIDE DECREASED [None]
  - WEIGHT DECREASED [None]
  - HYPOTHYROIDISM [None]
  - ASTHMA [None]
  - DERMATITIS [None]
  - MUSCULOSKELETAL STIFFNESS [None]
  - DRUG SCREEN POSITIVE [None]
  - LARGE INTESTINAL ULCER [None]
